FAERS Safety Report 6083810-7 (Version None)
Quarter: 2009Q1

REPORT INFORMATION
  Report Type: 
  Country: None (occurrence: None)
  Receive Date: 20090219
  Receipt Date: 20090218
  Transmission Date: 20090719
  Serious: Yes (Other)
  Sender: FDA-Public Use
  Company Number: US-PFIZER INC-2008100518

PATIENT
  Sex: Male

DRUGS (2)
  1. GLIPIZIDE [Suspect]
  2. METFORMIN HCL [Suspect]

REACTIONS (3)
  - ASTHENIA [None]
  - DYSPNOEA [None]
  - RASH [None]
